FAERS Safety Report 8423583-3 (Version None)
Quarter: 2012Q2

REPORT INFORMATION
  Report Type: 
  Country: None (occurrence: None)
  Receive Date: 20120608
  Receipt Date: 20120531
  Transmission Date: 20120825
  Serious: Yes (Hospitalization)
  Sender: FDA-Public Use
  Company Number: JP-VERTEX PHARMACEUTICALS INC.-AE-2012-003958

PATIENT
  Age: 62 Year
  Sex: Male

DRUGS (8)
  1. PEG-INTRON [Concomitant]
     Route: 058
     Dates: start: 20120227
  2. REBETOL [Concomitant]
     Route: 048
     Dates: start: 20120419
  3. ATELEC [Concomitant]
     Route: 048
  4. PREDNISOLONE [Concomitant]
     Route: 048
     Dates: start: 20120314
  5. ALLEGRA [Concomitant]
     Dates: start: 20120315
  6. TELAVIC (TELAPREVIR) [Suspect]
     Indication: HEPATITIS C
     Route: 048
     Dates: start: 20120312, end: 20120412
  7. REBETOL [Concomitant]
     Route: 048
     Dates: start: 20120227, end: 20120419
  8. CLOBETASOL PROPIONATE [Concomitant]
     Route: 051
     Dates: start: 20120315

REACTIONS (1)
  - RASH [None]
